FAERS Safety Report 5460537-3 (Version None)
Quarter: 2007Q3

REPORT INFORMATION
  Report Type: 
  Country: None (occurrence: None)
  Receive Date: 20070919
  Receipt Date: 20070725
  Transmission Date: 20080115
  Serious: No
  Sender: FDA-Public Use
  Company Number: US-ASTRAZENECA-2007UW18008

PATIENT
  Age: 19 Year
  Sex: Female

DRUGS (6)
  1. SEROQUEL [Suspect]
     Indication: BIPOLAR DISORDER
     Route: 048
     Dates: start: 19900101
  2. LAMICTAL [Concomitant]
  3. INHALERS [Concomitant]
  4. ADVAIR DISKUS 100/50 [Concomitant]
     Dosage: 500/50
  5. PROAIR HFA [Concomitant]
  6. VENTOLIN HFA [Concomitant]

REACTIONS (5)
  - DYSKINESIA [None]
  - FOOT DEFORMITY [None]
  - MUSCLE TWITCHING [None]
  - MUSCULAR WEAKNESS [None]
  - VISION BLURRED [None]
